FAERS Safety Report 4679262-1 (Version None)
Quarter: 2005Q2

REPORT INFORMATION
  Report Type: 
  Country: None (occurrence: None)
  Receive Date: 20050531
  Receipt Date: 20050531
  Transmission Date: 20051028
  Serious: No
  Sender: FDA-Public Use
  Company Number: None

PATIENT
  Sex: Female
  Weight: 54 kg

DRUGS (3)
  1. ETOPOSIDE [Suspect]
     Dosage: 10 MG/KG/DAY CIV ON DAYS 1-4
     Dates: start: 20050510
  2. CYTARABINE [Suspect]
     Dosage: 2 G/M2 IV OVER 2 HOURS
  3. G-CSF [Suspect]
     Dosage: 10 MCG/KG/DAY SC
     Route: 058

REACTIONS (4)
  - HAEMATEMESIS [None]
  - HAEMOGLOBIN DECREASED [None]
  - NAUSEA [None]
  - PLATELET COUNT DECREASED [None]
